FAERS Safety Report 10444309 (Version 11)
Quarter: 2015Q4

REPORT INFORMATION
  Report Type: Spontaneous
  Country: US (occurrence: US)
  Receive Date: 20140910
  Receipt Date: 20151022
  Transmission Date: 20160304
  Serious: Yes (Hospitalization, Other)
  Sender: FDA-Public Use
  Company Number: US-009507513-1204USA01364

PATIENT
  Sex: Female
  Weight: 78.46 kg

DRUGS (4)
  1. FELODIPINE. [Concomitant]
     Active Substance: FELODIPINE
     Indication: HYPERTENSION
     Dosage: 10 MG, QD
     Route: 065
     Dates: start: 1992
  2. CITALOPRAM HYDROBROMIDE. [Concomitant]
     Active Substance: CITALOPRAM HYDROBROMIDE
     Indication: DEPRESSION
     Dosage: 40 MG, QD
     Route: 065
     Dates: start: 1992
  3. FOSAMAX [Suspect]
     Active Substance: ALENDRONATE SODIUM
     Indication: OSTEOGENESIS IMPERFECTA
     Dosage: 70 MG, QW
     Route: 048
     Dates: start: 20040818, end: 200805
  4. FOSAMAX [Suspect]
     Active Substance: ALENDRONATE SODIUM
     Indication: OSTEOPOROSIS
     Route: 048
     Dates: start: 200802, end: 2010

REACTIONS (47)
  - Hip arthroplasty [Unknown]
  - Urinary incontinence [Unknown]
  - Bundle branch block left [Unknown]
  - Haemorrhoids [Unknown]
  - Urinary tract infection [Unknown]
  - Muscle spasms [Unknown]
  - Gastrooesophageal reflux disease [Unknown]
  - Hip arthroplasty [Unknown]
  - Wound secretion [Unknown]
  - Depression [Unknown]
  - Fall [Unknown]
  - Staphylococcal infection [Unknown]
  - Back pain [Unknown]
  - Internal fixation of fracture [Unknown]
  - Removal of internal fixation [Unknown]
  - Femur fracture [Unknown]
  - Epistaxis [Unknown]
  - Fracture nonunion [Unknown]
  - Carpal tunnel decompression [Unknown]
  - Tibia fracture [Unknown]
  - Femur fracture [Unknown]
  - Haematochezia [Unknown]
  - Blood glucose increased [Unknown]
  - Hallucination [Unknown]
  - Effusion [Unknown]
  - Groin pain [Unknown]
  - Off label use [Unknown]
  - Rash [Unknown]
  - Arthralgia [Unknown]
  - Fall [Unknown]
  - Fracture nonunion [Unknown]
  - Wound drainage [Recovering/Resolving]
  - Femur fracture [Unknown]
  - Femur fracture [Unknown]
  - Hiatus hernia [Unknown]
  - Dysphagia [Unknown]
  - Joint arthroplasty [Unknown]
  - Low turnover osteopathy [Unknown]
  - Medical device removal [Unknown]
  - Carpal tunnel syndrome [Unknown]
  - Haematoma evacuation [Unknown]
  - Joint stiffness [Unknown]
  - Limb asymmetry [Unknown]
  - Removal of internal fixation [Unknown]
  - Haematoma [Unknown]
  - Medical device complication [Unknown]
  - Bursitis [Unknown]

NARRATIVE: CASE EVENT DATE: 20040818
